FAERS Safety Report 8953620 (Version 3)
Quarter: 2014Q2

REPORT INFORMATION
  Report Type: Report from Study
  Country: AU (occurrence: AU)
  Receive Date: 20121206
  Receipt Date: 20140607
  Transmission Date: 20141212
  Serious: Yes (Disabling, Other)
  Sender: FDA-Public Use
  Company Number: AU-ROCHE-1159832

PATIENT
  Age: 75 Year
  Sex: Female

DRUGS (9)
  1. METHOXY POLYETHYLENE GLYCOL-EPOETIN BETA [Suspect]
     Indication: NEPHROGENIC ANAEMIA
     Route: 058
     Dates: start: 20110822
  2. METHOXY POLYETHYLENE GLYCOL-EPOETIN BETA [Suspect]
     Route: 065
     Dates: start: 20120107
  3. FRUSEMIDE [Concomitant]
  4. RAMIPRIL [Concomitant]
  5. CARVEDILOL [Concomitant]
  6. CLOPIDOGREL [Concomitant]
  7. GTN PATCH [Concomitant]
  8. ASPIRIN [Concomitant]
  9. MIXTARD [Concomitant]

REACTIONS (5)
  - Chest pain [Unknown]
  - Cardiac failure congestive [Unknown]
  - Acidosis [Unknown]
  - Acute myocardial infarction [Unknown]
  - Renal failure acute [Unknown]
